FAERS Safety Report 16287687 (Version 3)
Quarter: 2021Q3

REPORT INFORMATION
  Report Type: Spontaneous
  Country: US (occurrence: US)
  Receive Date: 20190508
  Receipt Date: 20210721
  Transmission Date: 20211014
  Serious: Yes (Hospitalization, Disabling, Other)
  Sender: FDA-Public Use
  Company Number: US-ASTRAZENECA-2019SE62696

PATIENT
  Age: 37 Year
  Sex: Male
  Weight: 86.2 kg

DRUGS (66)
  1. PROTONIX [Suspect]
     Active Substance: PANTOPRAZOLE SODIUM
     Indication: GASTROOESOPHAGEAL REFLUX DISEASE
     Route: 065
     Dates: start: 2013
  2. ALBUTEROL. [Concomitant]
     Active Substance: ALBUTEROL
     Indication: BRONCHOSPASM
     Route: 065
     Dates: start: 20171114, end: 20171204
  3. TYLENOL [Concomitant]
     Active Substance: ACETAMINOPHEN
     Indication: PAIN
     Route: 065
     Dates: start: 199001
  4. VITAMIN D [Concomitant]
     Active Substance: VITAMIN D NOS
     Indication: BONE DISORDER
  5. PEPCID [Concomitant]
     Active Substance: FAMOTIDINE
  6. MYLANTA [Concomitant]
     Active Substance: ALUMINUM HYDROXIDE\DIMETHICONE\MAGNESIUM HYDROXIDE
  7. GENTAMICIN. [Concomitant]
     Active Substance: GENTAMICIN
  8. LIDOCAINE. [Concomitant]
     Active Substance: LIDOCAINE
  9. BISACODYL. [Concomitant]
     Active Substance: BISACODYL
  10. CLOPIDOGREL [Concomitant]
     Active Substance: CLOPIDOGREL BISULFATE
  11. PROTONIX [Suspect]
     Active Substance: PANTOPRAZOLE SODIUM
     Indication: GASTROOESOPHAGEAL REFLUX DISEASE
     Route: 065
     Dates: start: 2000
  12. BENADRYL [Concomitant]
     Active Substance: DIPHENHYDRAMINE HYDROCHLORIDE
     Indication: MULTIPLE ALLERGIES
     Route: 065
     Dates: start: 199001
  13. AMOXICILLIN. [Concomitant]
     Active Substance: AMOXICILLIN
  14. DOCUSATE SODIUM. [Concomitant]
     Active Substance: DOCUSATE SODIUM
  15. CIPRODEX [Concomitant]
     Active Substance: CIPROFLOXACIN HYDROCHLORIDE\DEXAMETHASONE
  16. BENZONATATE. [Concomitant]
     Active Substance: BENZONATATE
  17. CLONIDINE. [Concomitant]
     Active Substance: CLONIDINE
  18. PROTONIX [Suspect]
     Active Substance: PANTOPRAZOLE SODIUM
     Indication: GASTROOESOPHAGEAL REFLUX DISEASE
     Route: 065
     Dates: start: 2000
  19. PREDNISONE. [Concomitant]
     Active Substance: PREDNISONE
     Indication: INFLAMMATION
     Route: 065
     Dates: start: 20080121, end: 20151021
  20. LISINOPRIL. [Concomitant]
     Active Substance: LISINOPRIL
     Indication: HYPERTENSION
     Route: 065
     Dates: start: 20160205
  21. PEPCID AC [Concomitant]
     Active Substance: FAMOTIDINE
  22. CALCITRIOL. [Concomitant]
     Active Substance: CALCITRIOL
  23. POTASSIUM CHLORIDE. [Concomitant]
     Active Substance: POTASSIUM CHLORIDE
  24. FLUCONAZOLE. [Concomitant]
     Active Substance: FLUCONAZOLE
  25. DOXYCYCLINE. [Concomitant]
     Active Substance: DOXYCYCLINE
  26. MYCOPHENOLATE [Concomitant]
     Active Substance: MYCOPHENOLIC ACID
  27. NEXIUM [Suspect]
     Active Substance: ESOMEPRAZOLE MAGNESIUM
     Indication: GASTROOESOPHAGEAL REFLUX DISEASE
     Dosage: GENERIC
     Route: 065
     Dates: start: 2016
  28. PRILOSEC [Suspect]
     Active Substance: OMEPRAZOLE MAGNESIUM
     Indication: GASTROOESOPHAGEAL REFLUX DISEASE
     Route: 048
     Dates: start: 2013
  29. PREVACID [Suspect]
     Active Substance: LANSOPRAZOLE
     Route: 065
  30. ISOSORBIDE MONONITRATE. [Concomitant]
     Active Substance: ISOSORBIDE MONONITRATE
     Indication: CARDIAC FAILURE
     Route: 065
     Dates: start: 20130814, end: 20180602
  31. TRAMADOL. [Concomitant]
     Active Substance: TRAMADOL
  32. GENTAMICIN. [Concomitant]
     Active Substance: GENTAMICIN
  33. ONDANSETRON [Concomitant]
     Active Substance: ONDANSETRON
  34. NITROSTAT [Concomitant]
     Active Substance: NITROGLYCERIN
  35. LOSARTAN. [Concomitant]
     Active Substance: LOSARTAN
  36. SPIRIVA [Concomitant]
     Active Substance: TIOTROPIUM BROMIDE MONOHYDRATE
  37. SENNA [Concomitant]
     Active Substance: SENNA LEAF\SENNOSIDES\SENNOSIDES A AND B
  38. AMOXICILLIN. [Concomitant]
     Active Substance: AMOXICILLIN
     Indication: INFECTION
     Route: 065
     Dates: start: 20140117, end: 20160822
  39. EPOGEN [Concomitant]
     Active Substance: ERYTHROPOIETIN
  40. LEVOFLOXACIN. [Concomitant]
     Active Substance: LEVOFLOXACIN
  41. AZITHROMYCIN ANHYDROUS. [Concomitant]
     Active Substance: AZITHROMYCIN ANHYDROUS
  42. ZOLPIDEM [Concomitant]
     Active Substance: ZOLPIDEM TARTRATE
  43. SODIUM BICARBONATE. [Concomitant]
     Active Substance: SODIUM BICARBONATE
  44. PROTONIX [Suspect]
     Active Substance: PANTOPRAZOLE SODIUM
     Indication: GASTROOESOPHAGEAL REFLUX DISEASE
     Route: 065
     Dates: start: 2013
  45. ROLAIDS [Concomitant]
     Active Substance: CALCIUM CARBONATE\MAGNESIUM HYDROXIDE
  46. OXYCODONE [Concomitant]
     Active Substance: OXYCODONE
  47. CEPHALEXIN. [Concomitant]
     Active Substance: CEPHALEXIN
  48. CALCIUM ACETATE. [Concomitant]
     Active Substance: CALCIUM ACETATE
  49. CALCITRIOL. [Concomitant]
     Active Substance: CALCITRIOL
  50. PRILOSEC [Suspect]
     Active Substance: OMEPRAZOLE MAGNESIUM
     Indication: GASTROOESOPHAGEAL REFLUX DISEASE
     Dosage: GENERIC
     Route: 065
     Dates: end: 2017
  51. PEPTO?BISMOL [Concomitant]
     Active Substance: BISMUTH SUBSALICYLATE
  52. TRAZODONE [Concomitant]
     Active Substance: TRAZODONE HYDROCHLORIDE
  53. BETAMETHASONE. [Concomitant]
     Active Substance: BETAMETHASONE
  54. NYSTATIN. [Concomitant]
     Active Substance: NYSTATIN
  55. IPRATROPIUM [Concomitant]
     Active Substance: IPRATROPIUM
  56. NEXIUM [Suspect]
     Active Substance: ESOMEPRAZOLE MAGNESIUM
     Indication: GASTROOESOPHAGEAL REFLUX DISEASE
     Route: 048
     Dates: start: 2001, end: 2017
  57. PRILOSEC [Suspect]
     Active Substance: OMEPRAZOLE MAGNESIUM
     Indication: GASTROOESOPHAGEAL REFLUX DISEASE
     Route: 048
     Dates: start: 1990
  58. IBUPROFEN. [Concomitant]
     Active Substance: IBUPROFEN
     Indication: HEADACHE
     Route: 065
     Dates: start: 199001
  59. TUMS [Concomitant]
     Active Substance: CALCIUM CARBONATE
  60. DULCOLAX NOS [Concomitant]
     Active Substance: BISACODYL OR DOCUSATE SODIUM
  61. LACTULOSE. [Concomitant]
     Active Substance: LACTULOSE
  62. LANTUS [Concomitant]
     Active Substance: INSULIN GLARGINE
  63. NITROGLYCERIN. [Concomitant]
     Active Substance: NITROGLYCERIN
  64. ESCITALOPRAM [Concomitant]
     Active Substance: ESCITALOPRAM OXALATE
  65. CYCLOBENZAPRINE. [Concomitant]
     Active Substance: CYCLOBENZAPRINE
  66. MOMETASONE [Concomitant]
     Active Substance: MOMETASONE

REACTIONS (5)
  - Chronic kidney disease [Not Recovered/Not Resolved]
  - End stage renal disease [Not Recovered/Not Resolved]
  - Nephrogenic anaemia [Unknown]
  - Acute kidney injury [Not Recovered/Not Resolved]
  - Renal failure [Not Recovered/Not Resolved]

NARRATIVE: CASE EVENT DATE: 2002
